FAERS Safety Report 15343207 (Version 1)
Quarter: 2018Q4

REPORT INFORMATION
  Report Type: Other
  Country: JP (occurrence: JP)
  Receive Date: 20180903
  Receipt Date: 20180903
  Transmission Date: 20190204
  Serious: Yes (Life-Threatening, Hospitalization, Other)
  Sender: FDA-Public Use
  Company Number: JP-KRKA, D.D., NOVO MESTO-2054567

PATIENT
  Age: 84 Year
  Sex: Female
  Weight: 36 kg

DRUGS (11)
  1. URAPIDIL [Concomitant]
     Active Substance: URAPIDIL
     Route: 048
  2. LORAZEPAM. [Concomitant]
     Active Substance: LORAZEPAM
     Route: 046
  3. DONEPEZIL. [Concomitant]
     Active Substance: DONEPEZIL
     Route: 048
  4. ACELIO -PARACETAMOL [Suspect]
     Active Substance: ACETAMINOPHEN
     Route: 042
  5. BUTYRIC ACID BACTERIA [Concomitant]
     Route: 048
  6. MAGNESIUM OXIDE. [Concomitant]
     Active Substance: MAGNESIUM OXIDE
     Route: 048
  7. DETRUSITOL SR [Concomitant]
     Active Substance: TOLTERODINE TARTRATE
     Route: 048
  8. LANSOPRAZOLE. [Suspect]
     Active Substance: LANSOPRAZOLE
     Indication: WHITE BLOOD CELL COUNT
     Route: 048
  9. ISOSORBIDE DINITRATE. [Concomitant]
     Active Substance: ISOSORBIDE DINITRATE
     Route: 048
  10. MILNACIPRAN [Concomitant]
     Active Substance: MILNACIPRAN
     Route: 048
  11. ETIZOLAM [Concomitant]
     Active Substance: ETIZOLAM
     Route: 048

REACTIONS (8)
  - Overdose [Recovering/Resolving]
  - Drug interaction [Recovering/Resolving]
  - Hepatic atrophy [Recovering/Resolving]
  - Coma hepatic [Recovering/Resolving]
  - Hepatic encephalopathy [Recovering/Resolving]
  - Acute hepatic failure [Recovering/Resolving]
  - Drug-induced liver injury [Recovering/Resolving]
  - Toxicity to various agents [Recovering/Resolving]
